FAERS Safety Report 10534112 (Version 2)
Quarter: 2014Q4

REPORT INFORMATION
  Report Type: Spontaneous
  Country: US (occurrence: US)
  Receive Date: 20141022
  Receipt Date: 20141204
  Transmission Date: 20150529
  Serious: No
  Sender: FDA-Public Use
  Company Number: US-PFIZER INC-2014286465

PATIENT
  Age: 79 Year
  Sex: Female
  Weight: 54 kg

DRUGS (3)
  1. AMLODIPINE BESILATE [Suspect]
     Active Substance: AMLODIPINE BESYLATE
     Indication: BLOOD PRESSURE FLUCTUATION
     Dosage: 10 MG, UNK
     Dates: start: 201401
  2. AMLODIPINE BESILATE [Suspect]
     Active Substance: AMLODIPINE BESYLATE
     Dosage: 5 UNK, UNK
  3. CRANBERRY. [Concomitant]
     Active Substance: CRANBERRY
     Dosage: 2 (500MG) DF, 2X/DAY
     Route: 048

REACTIONS (10)
  - Hearing impaired [Not Recovered/Not Resolved]
  - Eye irritation [Unknown]
  - Eye pruritus [Unknown]
  - Insomnia [Unknown]
  - Arthralgia [Unknown]
  - Appetite disorder [Unknown]
  - Ocular hyperaemia [Unknown]
  - Cataract [Unknown]
  - Abnormal dreams [Unknown]
  - Weight increased [Unknown]
